FAERS Safety Report 26116652 (Version 1)
Quarter: 2025Q4

REPORT INFORMATION
  Report Type: Spontaneous
  Country: US (occurrence: None)
  Receive Date: 20251203
  Receipt Date: 20251203
  Transmission Date: 20260118
  Serious: Yes (Hospitalization)
  Sender: FDA-CTU
  Company Number: None

PATIENT
  Age: 36 Year
  Sex: Male
  Weight: 77.8 kg

DRUGS (4)
  1. BLEOMYCIN [Suspect]
     Active Substance: BLEOMYCIN SULFATE
     Dosage: OTHER QUANTITY : 19.8 UNIT;?
     Dates: end: 20251120
  2. DACARBAZINE [Suspect]
     Active Substance: DACARBAZINE
     Dates: end: 20251120
  3. DOXORUBICIN HYDROCHLORIDE [Suspect]
     Active Substance: DOXORUBICIN HYDROCHLORIDE
     Dates: end: 20251120
  4. VINBLASTINE SULFATE [Suspect]
     Active Substance: VINBLASTINE SULFATE
     Dates: end: 20251120

REACTIONS (3)
  - Perirectal abscess [None]
  - Dysuria [None]
  - Immunodeficiency [None]

NARRATIVE: CASE EVENT DATE: 20251130
